FAERS Safety Report 8098271 (Version 5)
Quarter: 2013Q3

REPORT INFORMATION
  Report Type: Report from Study
  Country: JP (occurrence: JP)
  Receive Date: 20110819
  Receipt Date: 20130904
  Transmission Date: 20140515
  Serious: Yes (Life-Threatening, Hospitalization)
  Sender: FDA-Public Use
  Company Number: JP-CELGENEUS-087-21880-11080992

PATIENT
  Age: 69 Year
  Sex: Male

DRUGS (17)
  1. REVLIMID [Suspect]
     Indication: PLASMA CELL MYELOMA
     Dosage: 5 MILLIGRAM
     Route: 048
     Dates: start: 20110720, end: 20110802
  2. LENADEX [Suspect]
     Indication: PLASMA CELL MYELOMA
     Route: 048
     Dates: start: 20110720, end: 20110727
  3. LENADEX [Suspect]
     Route: 048
     Dates: start: 2011, end: 20110803
  4. BAYASPIRIN [Concomitant]
     Indication: THROMBOSIS PROPHYLAXIS
     Dosage: 100 MILLIGRAM
     Route: 048
     Dates: start: 20110720, end: 20110805
  5. DECADRON [Concomitant]
     Indication: PRODUCT USED FOR UNKNOWN INDICATION
     Route: 065
  6. ITRIZOLE [Concomitant]
     Indication: INFECTION PROPHYLAXIS
     Dosage: 100 MILLIGRAM
     Route: 048
     Dates: start: 20090123
  7. LANDSEN [Concomitant]
     Indication: NEUROPATHY PERIPHERAL
     Dosage: .5 MILLIGRAM
     Route: 048
     Dates: start: 20100719
  8. ACIROVEC [Concomitant]
     Indication: INFECTION PROPHYLAXIS
     Dosage: 200 MILLIGRAM
     Route: 048
     Dates: start: 20100523
  9. ALINAMIN-F [Concomitant]
     Indication: NEUROPATHY PERIPHERAL
     Dosage: 75 MILLIGRAM
     Route: 048
     Dates: start: 20100804
  10. GABAPEN [Concomitant]
     Indication: NEUROPATHY PERIPHERAL
     Dosage: 600 MILLIGRAM
     Route: 048
     Dates: start: 20100608
  11. TAKEPRON [Concomitant]
     Indication: PROPHYLAXIS AGAINST GASTROINTESTINAL ULCER
     Dosage: 15 MILLIGRAM
     Route: 048
     Dates: start: 20090115
  12. BAKTAR [Concomitant]
     Indication: INFECTION PROPHYLAXIS
     Route: 048
     Dates: start: 20090123
  13. BIOFERMIN R [Concomitant]
     Indication: GASTROINTESTINAL DISORDER
     Dosage: 18 MILLIGRAM
     Route: 048
     Dates: start: 20100806
  14. FOLIAMIN [Concomitant]
     Indication: NEUROPATHY PERIPHERAL
     Dosage: 15 MILLIGRAM
     Route: 048
     Dates: start: 20110811
  15. METHYCOBAL [Concomitant]
     Indication: NEUROPATHY PERIPHERAL
     Dosage: 1500 MICROGRAM
     Route: 048
     Dates: start: 20110616
  16. LYRICA [Concomitant]
     Indication: NEUROPATHY PERIPHERAL
     Dosage: 100 MILLIGRAM
     Route: 048
     Dates: start: 20101208
  17. FIRSTCIN [Concomitant]
     Indication: PYREXIA
     Route: 065
     Dates: start: 20110802

REACTIONS (1)
  - Interstitial lung disease [Recovering/Resolving]
